FAERS Safety Report 8777796 (Version 1)
Quarter: 2012Q4

REPORT INFORMATION
  Report Type: 
  Country: US (occurrence: US)
  Receive Date: 20120911
  Receipt Date: 20120911
  Transmission Date: 20130627
  Serious: Yes (Other)
  Sender: FDA-Public Use
  Company Number: PHEH2012US017105

PATIENT
  Sex: Female

DRUGS (4)
  1. CARBAMAZEPINE [Suspect]
     Indication: CONVULSION
     Dosage: 200 mg (three a day)
     Route: 048
  2. LEVOTHYROXINE [Concomitant]
     Dosage: 1 DF daily
  3. CHLORGIAZEPOXIDE [Concomitant]
     Dosage: 30 mg, PRN
  4. AMLODIPINE BESILATE [Concomitant]
     Dosage: 0.5 -2x daily

REACTIONS (8)
  - Tooth disorder [Unknown]
  - Post procedural complication [Unknown]
  - Speech disorder [Unknown]
  - Tongue disorder [Unknown]
  - Confusional state [Unknown]
  - Lethargy [Unknown]
  - Anticonvulsant drug level decreased [Unknown]
  - Drug ineffective [Unknown]
